FAERS Safety Report 20449825 (Version 3)
Quarter: 2022Q1

REPORT INFORMATION
  Report Type: Report from Study
  Country: FR (occurrence: FR)
  Receive Date: 20220209
  Receipt Date: 20220321
  Transmission Date: 20220423
  Serious: Yes (Hospitalization)
  Sender: FDA-Public Use
  Company Number: FR-SERVIER-S22001145

PATIENT

DRUGS (12)
  1. PEGASPARGASE [Suspect]
     Active Substance: PEGASPARGASE
     Indication: Acute lymphocytic leukaemia
     Dosage: 1250 IU, D12, D26 OF INDUCTION AND D8 AND D36
     Route: 042
     Dates: start: 20210528
  2. PEGASPARGASE [Suspect]
     Active Substance: PEGASPARGASE
     Dosage: 862.5 IU, D4
     Route: 042
     Dates: start: 20211014
  3. VINCRISTINE SULFATE [Suspect]
     Active Substance: VINCRISTINE SULFATE
     Indication: Acute lymphocytic leukaemia
     Dosage: 0.9 MG ON D1, D8, D15
     Route: 042
     Dates: start: 20211011, end: 20211025
  4. DOXORUBICIN HYDROCHLORIDE [Suspect]
     Active Substance: DOXORUBICIN HYDROCHLORIDE
     Indication: Acute lymphocytic leukaemia
     Dosage: 17.2 MG, ON D1, D8, D15
     Route: 042
     Dates: start: 20211011, end: 20211025
  5. THIOGUANINE [Suspect]
     Active Substance: THIOGUANINE
     Indication: Acute lymphocytic leukaemia
     Dosage: 40 MG, ON D30 TO D50
     Route: 048
     Dates: start: 20211117, end: 20211129
  6. DEXAMETHASONE [Suspect]
     Active Substance: DEXAMETHASONE
     Indication: Acute lymphocytic leukaemia
     Dosage: 65 MG ON D1 TO D24
     Route: 048
     Dates: start: 20211011, end: 20211024
  7. CYCLOPHOSPHAMIDE [Suspect]
     Active Substance: CYCLOPHOSPHAMIDE
     Indication: Acute lymphocytic leukaemia
     Dosage: 700 MG ON D29
     Route: 042
     Dates: start: 20211116
  8. CYTARABINE [Suspect]
     Active Substance: CYTARABINE
     Indication: Acute lymphocytic leukaemia
     Dosage: 52.5 MG ON D31 TO D34, D38 TO D41
     Route: 042
     Dates: start: 20211118, end: 20211128
  9. TN UNSPECIFIED [Concomitant]
     Indication: Acute lymphocytic leukaemia
     Dosage: 40 MG, D1 TO D7
     Route: 048
     Dates: start: 20210517, end: 20210523
  10. TN UNSPECIFIED [Concomitant]
     Indication: Acute lymphocytic leukaemia
     Dosage: 12 MG, ON D4 AND D31
     Route: 037
     Dates: start: 20211014, end: 20211119
  11. TN UNSPECIFIED [Concomitant]
     Indication: Acute lymphocytic leukaemia
     Dosage: 19.8 MG
     Route: 042
     Dates: start: 20210524, end: 20211128
  12. BACTRIM [Concomitant]
     Active Substance: SULFAMETHOXAZOLE\TRIMETHOPRIM
     Indication: Prophylaxis
     Dosage: 400 MG
     Route: 048
     Dates: start: 20210518

REACTIONS (4)
  - Febrile bone marrow aplasia [Recovered/Resolved with Sequelae]
  - Toe amputation [Not Recovered/Not Resolved]
  - Septic shock [Recovered/Resolved with Sequelae]
  - Dermo-hypodermitis [Recovered/Resolved with Sequelae]

NARRATIVE: CASE EVENT DATE: 20211029
